FAERS Safety Report 9873295 (Version 1)
Quarter: 2014Q1

REPORT INFORMATION
  Report Type: Other
  Country: US (occurrence: US)
  Receive Date: 20140206
  Receipt Date: 20140206
  Transmission Date: 20141002
  Serious: No
  Sender: FDA-Public Use
  Company Number: US-ACORDA-ACO_101386_2014

PATIENT
  Age: 57 Year
  Sex: Female
  Weight: 54.42 kg

DRUGS (3)
  1. AMPYRA [Suspect]
     Indication: GAIT DISTURBANCE
     Dosage: 10 MG, BID
     Route: 048
     Dates: start: 201306, end: 201401
  2. TECFIDERA [Concomitant]
     Indication: PRODUCT USED FOR UNKNOWN INDICATION
     Dosage: UNK
  3. ALL OTHER THERAPEUTIC PRODUCTS [Concomitant]
     Indication: STEROID THERAPY
     Dosage: UNK
     Route: 042

REACTIONS (5)
  - Neuropathy peripheral [Unknown]
  - Neck pain [Recovering/Resolving]
  - Facial pain [Recovering/Resolving]
  - Multiple sclerosis relapse [Recovering/Resolving]
  - Headache [Recovering/Resolving]
